FAERS Safety Report 12723224 (Version 1)
Quarter: 2016Q3

REPORT INFORMATION
  Report Type: Spontaneous
  Country: US (occurrence: US)
  Receive Date: 20160908
  Receipt Date: 20160908
  Transmission Date: 20161109
  Serious: Yes (Hospitalization)
  Sender: FDA-Public Use
  Company Number: US-ROCHE-1809905

PATIENT
  Age: 1 Year
  Sex: Male

DRUGS (7)
  1. ZANTAC [Concomitant]
     Active Substance: RANITIDINE HYDROCHLORIDE
  2. NAPROXEN. [Suspect]
     Active Substance: NAPROXEN
     Indication: PRODUCT USED FOR UNKNOWN INDICATION
     Route: 065
  3. ACTEMRA [Suspect]
     Active Substance: TOCILIZUMAB
     Indication: JUVENILE IDIOPATHIC ARTHRITIS
     Route: 058
  4. METHOTREXATE. [Concomitant]
     Active Substance: METHOTREXATE
  5. NEXIUM [Concomitant]
     Active Substance: ESOMEPRAZOLE MAGNESIUM
  6. ACTEMRA [Suspect]
     Active Substance: TOCILIZUMAB
     Indication: JUVENILE IDIOPATHIC ARTHRITIS
     Route: 042
  7. PREDNISOLONE. [Concomitant]
     Active Substance: PREDNISOLONE

REACTIONS (5)
  - Ileus [Unknown]
  - Pyrexia [Unknown]
  - Off label use [Unknown]
  - Arthralgia [Unknown]
  - Drug effect decreased [Unknown]
